FAERS Safety Report 4973429-0 (Version None)
Quarter: 2006Q2

REPORT INFORMATION
  Report Type: 
  Country: None (occurrence: None)
  Receive Date: 20060413
  Receipt Date: 20060413
  Transmission Date: 20061013
  Serious: Yes (Hospitalization)
  Sender: FDA-Public Use
  Company Number: None

PATIENT
  Age: 65 Year
  Sex: Male
  Weight: 89.8122 kg

DRUGS (4)
  1. LEVOFLOXACIN [Suspect]
     Indication: BRONCHITIS
     Dosage: 750 MG PO DAILY
     Route: 048
     Dates: start: 20060126
  2. LEVOFLOXACIN [Suspect]
     Indication: PNEUMONIA
     Dosage: 750 MG PO DAILY
     Route: 048
     Dates: start: 20060126
  3. CLARITIN [Concomitant]
  4. NASAL SPRAY [Concomitant]

REACTIONS (12)
  - APHONIA [None]
  - CHEST DISCOMFORT [None]
  - CORONARY ARTERY DISEASE [None]
  - DYSPHAGIA [None]
  - DYSPNOEA [None]
  - ELECTROCARDIOGRAM ST SEGMENT ELEVATION [None]
  - HYPOTENSION [None]
  - NAUSEA [None]
  - PALLOR [None]
  - SWELLING FACE [None]
  - SWOLLEN TONGUE [None]
  - VOMITING [None]
